FAERS Safety Report 16837465 (Version 1)
Quarter: 2019Q3

REPORT INFORMATION
  Report Type: Spontaneous
  Country: AR (occurrence: AR)
  Receive Date: 20190923
  Receipt Date: 20190923
  Transmission Date: 20191005
  Serious: Yes (Other)
  Sender: FDA-Public Use
  Company Number: AR-TEVA-2019-AR-1111513

PATIENT
  Sex: Male

DRUGS (3)
  1. ASTRODIL [Suspect]
     Active Substance: ABIRATERONE ACETATE
     Dosage: 500 MILLIGRAM DAILY; 4 COMP PER DAY (2 IN THE MORNING AND 2 IN THE AFTERNOON)
     Route: 048
     Dates: end: 20190912
  2. PREDNISONE. [Concomitant]
     Active Substance: PREDNISONE
  3. ASTRODIL [Suspect]
     Active Substance: ABIRATERONE ACETATE
     Indication: ADENOCARCINOMA
     Dosage: 500 MILLIGRAM DAILY; 4 COMP PER DAY (2 IN THE MORNING AND 2 IN THE AFTERNOON)
     Route: 048
     Dates: start: 20190812

REACTIONS (3)
  - Vasculitis [Unknown]
  - Petechiae [Unknown]
  - Urticaria [Unknown]
